FAERS Safety Report 6445098-4 (Version None)
Quarter: 2009Q4

REPORT INFORMATION
  Report Type: 
  Country: None (occurrence: None)
  Receive Date: 20091118
  Receipt Date: 20091110
  Transmission Date: 20100525
  Serious: Yes (Hospitalization)
  Sender: FDA-Public Use
  Company Number: US-BRISTOL-MYERS SQUIBB COMPANY-14852511

PATIENT
  Age: 83 Year
  Sex: Female

DRUGS (4)
  1. COUMADIN [Suspect]
  2. ENOXAPARIN SODIUM [Suspect]
  3. LOPRESSOR [Concomitant]
  4. DIGOXIN [Concomitant]

REACTIONS (4)
  - EPISTAXIS [None]
  - EYE HAEMORRHAGE [None]
  - MOUTH HAEMORRHAGE [None]
  - VISUAL ACUITY REDUCED [None]
